FAERS Safety Report 6651439-5 (Version None)
Quarter: 2010Q1

REPORT INFORMATION
  Report Type: 
  Country: None (occurrence: None)
  Receive Date: 20100325
  Receipt Date: 20100316
  Transmission Date: 20100710
  Serious: Yes (Death, Other)
  Sender: FDA-Public Use
  Company Number: US-ROCHE-690013

PATIENT

DRUGS (1)
  1. PEG-INTRON [Suspect]
     Indication: DRUG USE FOR UNKNOWN INDICATION
     Dosage: RECEIVING LOW DOSE
     Route: 065

REACTIONS (3)
  - DEATH [None]
  - DIABETES MELLITUS [None]
  - DIALYSIS [None]
